FAERS Safety Report 23890470 (Version 3)
Quarter: 2025Q4

REPORT INFORMATION
  Report Type: Spontaneous
  Country: EU (occurrence: EU)
  Receive Date: 20240523
  Receipt Date: 20251010
  Transmission Date: 20260117
  Serious: Yes (Hospitalization, Other)
  Sender: PFIZER
  Company Number: EU-PFIZER INC-AT-WYE-H17312810

PATIENT
  Age: 42 Year
  Sex: Male

DRUGS (6)
  1. PANTOZOL [Interacting]
     Active Substance: PANTOPRAZOLE SODIUM
     Indication: Helicobacter infection
     Dosage: 40 MG, 1X/DAY
     Route: 048
  2. PANTOZOL [Interacting]
     Active Substance: PANTOPRAZOLE SODIUM
     Dosage: UNK
     Route: 048
  3. AMOXICILLIN [Interacting]
     Active Substance: AMOXICILLIN
     Indication: Helicobacter infection
     Dosage: 1000 MG, 2X/DAY
     Route: 048
  4. AMOXICILLIN [Interacting]
     Active Substance: AMOXICILLIN
     Dosage: 2 G, 1X/DAY
  5. CLARITHROMYCIN [Interacting]
     Active Substance: CLARITHROMYCIN
     Indication: Helicobacter infection
     Dosage: 500 MG, 2X/DAY
     Route: 048
  6. CLARITHROMYCIN [Interacting]
     Active Substance: CLARITHROMYCIN
     Indication: Helicobacter gastritis
     Dosage: 1000 MG, 1X/DAY

REACTIONS (35)
  - Acute psychosis [Recovered/Resolved]
  - Sleep disorder [Recovered/Resolved]
  - Dysphoria [Recovered/Resolved]
  - Psychomotor hyperactivity [Recovered/Resolved]
  - Derealisation [Recovered/Resolved]
  - Disturbance in attention [Recovered/Resolved]
  - Abnormal behaviour [Recovered/Resolved]
  - Seizure [Recovered/Resolved]
  - Personality change [Recovered/Resolved]
  - Thought insertion [Recovered/Resolved]
  - Grandiosity [Recovered/Resolved]
  - Fear [Recovered/Resolved]
  - Restlessness [Recovered/Resolved]
  - Hypercholesterolaemia [Unknown]
  - Agitation [Recovered/Resolved]
  - Paranoia [Recovered/Resolved]
  - Nightmare [Recovered/Resolved]
  - Confusional state [Recovered/Resolved]
  - Euphoric mood [Recovered/Resolved]
  - Vomiting [Recovered/Resolved]
  - Personality disorder [Recovered/Resolved]
  - Delusional perception [Recovered/Resolved]
  - Insomnia [Recovered/Resolved]
  - Bradyphrenia [Recovered/Resolved]
  - Delusion [Recovered/Resolved]
  - Nervousness [Recovered/Resolved]
  - Anxiety [Recovered/Resolved]
  - Memory impairment [Recovered/Resolved]
  - Crying [Recovered/Resolved]
  - Disorientation [Recovered/Resolved]
  - Hypervigilance [Unknown]
  - Amnestic disorder [Unknown]
  - Thinking abnormal [Recovered/Resolved]
  - Drug interaction [Unknown]
  - Decreased appetite [Recovered/Resolved]
